FAERS Safety Report 5286592-1 (Version None)
Quarter: 2007Q2

REPORT INFORMATION
  Report Type: 
  Country: None (occurrence: None)
  Receive Date: 20070404
  Receipt Date: 20070330
  Transmission Date: 20071010
  Serious: No
  Sender: FDA-Public Use
  Company Number: US-GLAXOSMITHKLINE-A0630470A

PATIENT
  Age: 74 Year
  Sex: Female
  Weight: 59.5 kg

DRUGS (2)
  1. AVANDAMET [Suspect]
     Route: 048
  2. ACTOS [Suspect]

REACTIONS (6)
  - BLOOD TRIGLYCERIDES INCREASED [None]
  - BOWEL SOUNDS ABNORMAL [None]
  - DIZZINESS [None]
  - FATIGUE [None]
  - NAUSEA [None]
  - SLEEP DISORDER [None]
